FAERS Safety Report 6038608-2 (Version None)
Quarter: 2009Q1

REPORT INFORMATION
  Report Type: 
  Country: None (occurrence: None)
  Receive Date: 20090114
  Receipt Date: 20090114
  Transmission Date: 20090719
  Serious: Yes (Hospitalization)
  Sender: FDA-Public Use
  Company Number: None

PATIENT
  Age: 65 Year
  Sex: Female
  Weight: 52.1637 kg

DRUGS (2)
  1. CARBOPLATIN [Suspect]
     Indication: ADENOID CYSTIC CARCINOMA
     Dosage: 209MG EVERY WEEK X 6W IV
     Route: 042
     Dates: start: 20081028, end: 20081201
  2. TAXOL [Suspect]
     Indication: ADENOID CYSTIC CARCINOMA
     Dosage: 46MG EVERY WEEK X 6W IV
     Route: 042
     Dates: start: 20081028, end: 20081201

REACTIONS (3)
  - PYREXIA [None]
  - RASH [None]
  - TACHYCARDIA [None]
